FAERS Safety Report 6111302-5 (Version None)
Quarter: 2009Q1

REPORT INFORMATION
  Report Type: 
  Country: None (occurrence: None)
  Receive Date: 20090309
  Receipt Date: 20090220
  Transmission Date: 20090719
  Serious: Yes (Other)
  Sender: FDA-Public Use
  Company Number: 8043677

PATIENT
  Age: 42 Year
  Sex: Female
  Weight: 60 kg

DRUGS (8)
  1. KEPPRA [Suspect]
     Dosage: ONCE PO
     Route: 048
  2. CYMBALTA [Suspect]
     Dosage: ONCE PO
     Route: 048
  3. GABAPENTIN [Suspect]
     Dosage: ONCE PO
     Route: 048
  4. MCP /00041901/ [Suspect]
     Dosage: ONCE PO
     Route: 048
  5. MIRTAZAPINE [Suspect]
     Dosage: ONCE PO
     Route: 048
  6. SEROQUEL [Suspect]
     Dosage: ONCE PO
     Route: 048
  7. TEGRETOL [Suspect]
     Dosage: ONCE PO
     Route: 048
  8. TILIDIN [Suspect]
     Dosage: ONCE PO
     Route: 048

REACTIONS (4)
  - GASTROINTESTINAL SOUNDS ABNORMAL [None]
  - MUSCLE CONTRACTIONS INVOLUNTARY [None]
  - SOMNOLENCE [None]
  - SUICIDE ATTEMPT [None]
